FAERS Safety Report 9230150 (Version 1)
Quarter: 2013Q2

REPORT INFORMATION
  Report Type: Spontaneous
  Country: US (occurrence: US)
  Receive Date: 20130415
  Receipt Date: 20130415
  Transmission Date: 20140414
  Serious: Yes (Hospitalization)
  Sender: FDA-Public Use
  Company Number: US-BAYER-2013-045738

PATIENT
  Age: 23 Year
  Sex: Female

DRUGS (6)
  1. YAZ [Suspect]
  2. YASMIN [Suspect]
  3. TYLENOL [Concomitant]
  4. ADVAIR [Concomitant]
  5. NAPROXEN [Concomitant]
  6. NORCO [Concomitant]

REACTIONS (1)
  - Pulmonary embolism [None]
